FAERS Safety Report 16600686 (Version 2)
Quarter: 2019Q3

REPORT INFORMATION
  Report Type: Spontaneous
  Country: US (occurrence: US)
  Receive Date: 20190720
  Receipt Date: 20190730
  Transmission Date: 20191004
  Serious: No
  Sender: FDA-Public Use
  Company Number: US-JNJFOC-20190721353

PATIENT
  Age: 18 Year
  Sex: Female
  Weight: 47.67 kg

DRUGS (1)
  1. CHILDRENS MOTRIN [Suspect]
     Active Substance: IBUPROFEN
     Indication: ANALGESIC THERAPY
     Dosage: 15 ML EVERY FOUR HOURS FOR TWO DAYS
     Route: 048
     Dates: start: 20190627, end: 20190629

REACTIONS (2)
  - Product administered to patient of inappropriate age [Unknown]
  - Throat irritation [Recovered/Resolved]

NARRATIVE: CASE EVENT DATE: 20190627
